FAERS Safety Report 17224073 (Version 1)
Quarter: 2020Q1

REPORT INFORMATION
  Report Type: Spontaneous
  Country: FR (occurrence: FR)
  Receive Date: 20200102
  Receipt Date: 20200102
  Transmission Date: 20200409
  Serious: Yes (Other)
  Sender: FDA-Public Use
  Company Number: FR-MYLANLABS-2019M1129612

PATIENT
  Age: 71 Year
  Sex: Female
  Weight: 72 kg

DRUGS (6)
  1. TRANEXAMIC ACID. [Suspect]
     Active Substance: TRANEXAMIC ACID
     Indication: GENERAL ANAESTHESIA
     Dosage: 1500 MILLIGRAM, TOTAL
     Route: 042
     Dates: start: 20180423, end: 20180423
  2. KETAMINE RENAUDIN [Suspect]
     Active Substance: KETAMINE
     Indication: GENERAL ANAESTHESIA
     Dosage: 20 MILLIGRAM, TOTAL
     Route: 042
     Dates: start: 20180423, end: 20180423
  3. DEXAMETHASONE MYLAN [Suspect]
     Active Substance: DEXAMETHASONE
     Indication: GENERAL ANAESTHESIA
     Dosage: 8 MILLIGRAM, TOTAL
     Route: 042
     Dates: start: 20180423, end: 20180423
  4. SUFENTANIL MYLAN [Suspect]
     Active Substance: SUFENTANIL
     Indication: GENERAL ANAESTHESIA
     Dosage: 15 MILLIGRAM, TOTAL
     Route: 042
     Dates: start: 20180423, end: 20180423
  5. SUPRANE [Suspect]
     Active Substance: DESFLURANE
     Indication: GENERAL ANAESTHESIA
     Dosage: UNK
     Route: 055
     Dates: start: 20180423, end: 20180423
  6. PROPOFOL LIPURO [Suspect]
     Active Substance: PROPOFOL
     Indication: GENERAL ANAESTHESIA
     Dosage: 270 MILLIGRAM, TOTAL
     Route: 042
     Dates: start: 20180423, end: 20180423

REACTIONS (1)
  - Hepatitis cholestatic [Recovered/Resolved]

NARRATIVE: CASE EVENT DATE: 20180430
